FAERS Safety Report 7020585-9 (Version None)
Quarter: 2010Q3

REPORT INFORMATION
  Report Type: 
  Country: None (occurrence: None)
  Receive Date: 20100929
  Receipt Date: 20100924
  Transmission Date: 20110219
  Serious: Yes (Hospitalization)
  Sender: FDA-Public Use
  Company Number: A0805748A

PATIENT
  Age: 66 Year
  Sex: Male
  Weight: 92.7 kg

DRUGS (11)
  1. AVANDIA [Suspect]
     Indication: DIABETES MELLITUS
     Dosage: 4MG PER DAY
     Route: 048
     Dates: start: 20001001, end: 20060301
  2. FLOMAX [Concomitant]
  3. OXYGEN [Concomitant]
  4. DIGITEK [Concomitant]
  5. ZOCOR [Concomitant]
  6. PROPRANOLOL [Concomitant]
  7. GABAPENTIN [Concomitant]
  8. INDERAL [Concomitant]
  9. METFORMIN [Concomitant]
  10. ASPIRIN [Concomitant]
  11. INSULIN [Concomitant]

REACTIONS (3)
  - CARDIAC FAILURE CONGESTIVE [None]
  - CORONARY ARTERY DISEASE [None]
  - MYOCARDIAL INFARCTION [None]
